FAERS Safety Report 9017689 (Version 2)
Quarter: 2013Q3

REPORT INFORMATION
  Report Type: Spontaneous
  Country: GB (occurrence: GB)
  Receive Date: 20130118
  Receipt Date: 20130808
  Transmission Date: 20140515
  Serious: Yes (Other)
  Sender: FDA-Public Use
  Company Number: GB-AMGEN-BELSP2013002366

PATIENT
  Sex: Female

DRUGS (8)
  1. PROLIA [Suspect]
     Indication: OSTEOPOROTIC FRACTURE
     Dosage: 60 MG, ONE TIME DOSE
     Route: 030
     Dates: start: 20120927, end: 20120927
  2. BUTRANS                            /00444001/ [Concomitant]
  3. METRONIDAZOLE [Concomitant]
  4. OMEPRAZOLE [Concomitant]
  5. ORAMORPH [Concomitant]
  6. PARACETAMOL [Concomitant]
  7. TINZAPARIN SODIUM [Concomitant]
  8. ZOLPIDEM [Concomitant]

REACTIONS (1)
  - Liver function test abnormal [Not Recovered/Not Resolved]
